FAERS Safety Report 5073441-X (Version None)
Quarter: 2006Q3

REPORT INFORMATION
  Report Type: 
  Country: None (occurrence: None)
  Receive Date: 20060717
  Receipt Date: 20051109
  Transmission Date: 20061208
  Serious: No
  Sender: FDA-Public Use
  Company Number: 2005002195

PATIENT
  Age: 77 Year
  Sex: Male

DRUGS (10)
  1. TARCEVA [Suspect]
     Indication: LUNG NEOPLASM MALIGNANT
     Dosage: 150 MG (QD), ORAL
     Route: 048
     Dates: start: 20051015, end: 20051025
  2. WARFARIN SODIUM [Concomitant]
  3. LIPITOR [Concomitant]
  4. SYNTHROID [Concomitant]
  5. ASA(ACETYLSALICYCLIC ACID) [Concomitant]
  6. PROCRIT [Concomitant]
  7. MULTI-VITAMIN [Concomitant]
  8. METOPROLOL(METOPROLOL) [Concomitant]
  9. DIGOXIN [Concomitant]
  10. OXYGEN(OXYGEN) [Concomitant]

REACTIONS (5)
  - DIARRHOEA [None]
  - ERYTHEMA [None]
  - HAEMORRHAGE [None]
  - OCULAR HYPERAEMIA [None]
  - SKIN HAEMORRHAGE [None]
